FAERS Safety Report 9780255 (Version 1)
Quarter: 2013Q4

REPORT INFORMATION
  Report Type: Report from Study
  Country: TR (occurrence: TR)
  Receive Date: 20131223
  Receipt Date: 20131223
  Transmission Date: 20140711
  Serious: Yes (Hospitalization)
  Sender: FDA-Public Use
  Company Number: TR-ROCHE-1324588

PATIENT
  Age: 71 Year
  Sex: Female

DRUGS (2)
  1. XELODA [Suspect]
     Indication: LUNG NEOPLASM MALIGNANT
     Dosage: 3+3/DAILY
     Route: 048
     Dates: start: 20130520, end: 20130813
  2. XELODA [Suspect]
     Dosage: 3+3/DAILY
     Route: 048
     Dates: start: 20131111

REACTIONS (1)
  - Cardiospasm [Recovered/Resolved]
